FAERS Safety Report 8878378 (Version 1)
Quarter: 2012Q4

REPORT INFORMATION
  Report Type: 
  Country: JP (occurrence: JP)
  Receive Date: 20121030
  Receipt Date: 20121030
  Transmission Date: 20130627
  Serious: Yes (Hospitalization)
  Sender: FDA-Public Use
  Company Number: JP-ACTELION-A-CH2012-70967

PATIENT
  Age: 60 Year
  Sex: Female
  Weight: 31.8 kg

DRUGS (12)
  1. TRACLEER [Suspect]
     Indication: PULMONARY HYPERTENSION
     Dosage: 187.5 mg, bid
     Route: 048
     Dates: start: 20091120
  2. TRACLEER [Suspect]
     Dosage: 62.5 mg, bid
     Route: 048
     Dates: start: 20091023, end: 20091119
  3. PREDNISOLONE [Concomitant]
  4. RABEPRAZOLE SODIUM [Concomitant]
  5. SULFAMETHOXAZOLE W/TRIMETHOPRIM [Concomitant]
  6. ITRACONAZOLE [Concomitant]
  7. FUROSEMIDE [Concomitant]
  8. SPIRONOLACTONE [Concomitant]
  9. WARFARIN POTASSIUM [Concomitant]
  10. FLUTICASONE PROPIONATE [Concomitant]
  11. SALMETEROL XINAFOATE [Concomitant]
  12. OXYGEN [Concomitant]

REACTIONS (4)
  - Femoral neck fracture [Unknown]
  - Injury [Unknown]
  - Dyspnoea [Not Recovered/Not Resolved]
  - Oxygen saturation decreased [Not Recovered/Not Resolved]
